FAERS Safety Report 9165737 (Version 1)
Quarter: 2013Q1

REPORT INFORMATION
  Report Type: Spontaneous
  Country: US (occurrence: None)
  Receive Date: 20130314
  Receipt Date: 20130314
  Transmission Date: 20140127
  Serious: Yes (Other)
  Sender: FDA-Public Use
  Company Number: None

PATIENT
  Age: 64 Year
  Sex: Female
  Weight: 74.84 kg

DRUGS (1)
  1. ANASTROZOLE [Suspect]
     Indication: BREAST CANCER
     Dosage: 1 MG/USP, 1/PER DAY
     Dates: start: 201112

REACTIONS (15)
  - Anxiety [None]
  - Cough [None]
  - Alopecia [None]
  - Weight increased [None]
  - Fatigue [None]
  - Pain in extremity [None]
  - Swelling [None]
  - Insomnia [None]
  - Blister [None]
  - Arthralgia [None]
  - Malaise [None]
  - Depression [None]
  - Erythema [None]
  - Arthralgia [None]
  - Myalgia [None]
